FAERS Safety Report 7030206 (Version 6)
Quarter: 2014Q4

REPORT INFORMATION
  Report Type: Spontaneous
  Country: US (occurrence: US)
  Receive Date: 20090623
  Receipt Date: 20141111
  Transmission Date: 20150529
  Serious: Yes (Life-Threatening, Hospitalization, Other)
  Sender: FDA-Public Use
  Company Number: US-BAYER-200923694NA

PATIENT
  Age: 38 Year
  Sex: Female
  Weight: 56 kg

DRUGS (8)
  1. YAZ [Suspect]
     Active Substance: DROSPIRENONE\ETHINYL ESTRADIOL
     Indication: CONTRACEPTION
     Dosage: UNK, QD
     Route: 048
     Dates: start: 200610, end: 20070606
  2. DILTIAZEM [Concomitant]
     Active Substance: DILTIAZEM
     Route: 065
  3. YAZ [Suspect]
     Active Substance: DROSPIRENONE\ETHINYL ESTRADIOL
     Indication: UTERINE LEIOMYOMA
  4. NITRO [Concomitant]
     Active Substance: NITROGLYCERIN
     Route: 065
  5. VITAMIN C [Concomitant]
     Active Substance: ASCORBIC ACID
     Route: 065
  6. OMEGA-3 ACIDS [Concomitant]
     Active Substance: OMEGA-3 FATTY ACIDS
     Dosage: 1000 MG (DAILY DOSE), QD, UNKNOWN
     Route: 065
  7. MAGNESIUM [MAGNESIUM OXIDE] [Concomitant]
     Route: 065
  8. NITRO [Concomitant]
     Active Substance: NITROGLYCERIN
     Route: 065

REACTIONS (19)
  - Ventricular arrhythmia [None]
  - Vasculitis [None]
  - Myalgia [Unknown]
  - Chest discomfort [Unknown]
  - Chest pain [Unknown]
  - Headache [Unknown]
  - Ventricular fibrillation [None]
  - Palpitations [Unknown]
  - Constipation [Unknown]
  - Coronary artery occlusion [Unknown]
  - Cardiac arrest [Unknown]
  - Limb discomfort [Unknown]
  - Coronary artery dissection [Unknown]
  - Back pain [Unknown]
  - Acute myocardial infarction [Unknown]
  - Nausea [Unknown]
  - Angina pectoris [Unknown]
  - Dizziness [Unknown]
  - Weight increased [Unknown]

NARRATIVE: CASE EVENT DATE: 20070606
